FAERS Safety Report 15969483 (Version 10)
Quarter: 2020Q2

REPORT INFORMATION
  Report Type: Spontaneous
  Country: US (occurrence: US)
  Receive Date: 20190215
  Receipt Date: 20200514
  Transmission Date: 20200713
  Serious: No
  Sender: FDA-Public Use
  Company Number: US-PFIZER INC-2018414300

PATIENT
  Age: 60 Year
  Sex: Female
  Weight: 86 kg

DRUGS (29)
  1. ZYRTEC [Concomitant]
     Active Substance: CETIRIZINE HYDROCHLORIDE
     Indication: HYPERSENSITIVITY
     Dosage: 10 MG, 1X/DAY (1XDAILY AM)
  2. LORAZEPAM. [Concomitant]
     Active Substance: LORAZEPAM
     Indication: ANXIETY
     Dosage: 2 MG, AS NEEDED (1 TABLET PRIOR TO INFUSION)
  3. EXCEDRIN MIGRAINE [Concomitant]
     Active Substance: ACETAMINOPHEN\ASPIRIN\CAFFEINE
     Indication: HEADACHE
     Dosage: 2 DF, AS NEEDED (2 TABLETS, AS NEEDED)
  4. LYRICA [Suspect]
     Active Substance: PREGABALIN
     Indication: POLYNEUROPATHY CHRONIC
     Dosage: UNK
     Route: 048
  5. GABAPENTIN. [Concomitant]
     Active Substance: GABAPENTIN
     Indication: PAIN
  6. ASPIRIN. [Concomitant]
     Active Substance: ASPIRIN
     Indication: CEREBROVASCULAR ACCIDENT
     Dosage: 325 MG, 1X/DAY
     Dates: start: 20191204
  7. SAMBUCOL [Concomitant]
     Dosage: 1.7 G, 1X/DAY
  8. LYRICA [Suspect]
     Active Substance: PREGABALIN
     Indication: PAIN
     Dosage: 300 MG, 2X/DAY [1 (ONE) CAPSULE TWO TIMES DAILY]
     Route: 048
     Dates: start: 20190711
  9. QUETIAPINE. [Concomitant]
     Active Substance: QUETIAPINE
     Indication: DEPRESSION
     Dosage: 300 MG, 1X/DAY
     Dates: start: 20191031
  10. PRAVASTATIN SODIUM. [Concomitant]
     Active Substance: PRAVASTATIN SODIUM
     Indication: BLOOD CHOLESTEROL
     Dosage: 40 MG, ALTERNATE DAY (1X EVERY OTHER DAY PM)
  11. METHYLPREDNISOLONE. [Concomitant]
     Active Substance: METHYLPREDNISOLONE
     Indication: STEROID THERAPY
     Dosage: 4 MG, AS NEEDED
  12. LYRICA [Suspect]
     Active Substance: PREGABALIN
     Indication: NEUROPATHY PERIPHERAL
     Dosage: 300 MG, 2X/DAY (1 CAPSULE TWICE DAILY)
     Route: 048
     Dates: start: 20190118
  13. OCREVUS [Concomitant]
     Active Substance: OCRELIZUMAB
     Indication: MULTIPLE SCLEROSIS RELAPSE
     Dosage: 300 MG, UNK (EVERY 6 MONTHS FOR MULTIPLE SCLEROSIS)
     Route: 042
  14. QUETIAPINE FUMARATE. [Concomitant]
     Active Substance: QUETIAPINE FUMARATE
     Indication: DEPRESSION
     Dosage: 300 MG, 1X/DAY (1X DAILY PM)
  15. LYRICA [Suspect]
     Active Substance: PREGABALIN
     Indication: MULTIPLE SCLEROSIS
     Dosage: 300 MG, 2X/DAY
     Route: 048
     Dates: start: 20181008
  16. LYRICA [Suspect]
     Active Substance: PREGABALIN
     Dosage: 300 MG, 2X/DAY
     Dates: start: 20191204
  17. LYRICA [Suspect]
     Active Substance: PREGABALIN
     Dosage: 300 MG, 2X/DAY (1 (ONE) CAPSULE TWO TIMES DAILY)
     Route: 048
     Dates: start: 20200312
  18. VITAMIN D3 [Concomitant]
     Active Substance: CHOLECALCIFEROL
     Dosage: 5000 IU, 1X/DAY (1XDAILY AM)
  19. LYRICA [Suspect]
     Active Substance: PREGABALIN
     Indication: RESTLESS LEGS SYNDROME
     Dosage: 75 MG, UNK
     Route: 048
  20. GABAPENTIN. [Concomitant]
     Active Substance: GABAPENTIN
     Indication: MULTIPLE SCLEROSIS RELAPSE
     Dosage: UNK
  21. ESCITALOPRAM [Concomitant]
     Active Substance: ESCITALOPRAM OXALATE
     Indication: ANXIETY
     Dosage: 20 MG, 1X/DAY (1X DAILY PM)
  22. OXYBUTIN [Concomitant]
     Active Substance: OXYBUTYNIN
     Indication: BLADDER DISORDER
     Dosage: 5 MG, 1X/DAY
     Dates: start: 20191031
  23. NAPROXEN. [Concomitant]
     Active Substance: NAPROXEN
     Indication: ARTHRITIS
     Dosage: 500 MG, 2X/DAY (2XDAILY AM/PM)
     Dates: start: 20191031
  24. LACTULOSE. [Concomitant]
     Active Substance: LACTULOSE
     Dosage: UNK, 1X/DAY (10 G/15 ML ONCE DAILY)
  25. ESCITALOPRAM [Concomitant]
     Active Substance: ESCITALOPRAM OXALATE
     Indication: DEPRESSION
  26. OXYCODONE [Concomitant]
     Active Substance: OXYCODONE
     Indication: PAIN
     Dosage: 4 DF, DAILY (10-325MG, 2DAILY AM 2 DAILY PM)
  27. PANTOPRAZOLE [Concomitant]
     Active Substance: PANTOPRAZOLE
     Indication: ABDOMINAL DISCOMFORT
     Dosage: 20 MG, 1X/DAY (1 XDAILY PM)
  28. BAYER ASPIRIN [Concomitant]
     Active Substance: ASPIRIN
     Dosage: 325 MG, 1X/DAY (1X DAILY PM)
  29. MELATONIN [Concomitant]
     Active Substance: MELATONIN
     Indication: SLEEP DISORDER
     Dosage: 5 MG, 1X/DAY (1XDAILY PM)

REACTIONS (9)
  - Memory impairment [Unknown]
  - Pain in extremity [Unknown]
  - Restlessness [Unknown]
  - Influenza [Unknown]
  - Sluggishness [Unknown]
  - Nasopharyngitis [Unknown]
  - Malaise [Recovered/Resolved]
  - Insomnia [Unknown]
  - Muscular weakness [Unknown]
